FAERS Safety Report 10274157 (Version 1)
Quarter: 2014Q3

REPORT INFORMATION
  Report Type: Spontaneous
  Country: CA (occurrence: CA)
  Receive Date: 20140702
  Receipt Date: 20140702
  Transmission Date: 20150326
  Serious: Yes (Disabling)
  Sender: FDA-Public Use
  Company Number: CA-B.I. PHARMACEUTICALS,INC./RIDGEFIELD-2014-BI-29664CN

PATIENT
  Age: 79 Year
  Sex: Male
  Weight: 68.94 kg

DRUGS (5)
  1. MICARDIS [Suspect]
     Active Substance: TELMISARTAN
     Indication: PRODUCT USED FOR UNKNOWN INDICATION
     Dosage: 80 MG
     Route: 048
  2. ADVAIR HFA [Concomitant]
     Active Substance: FLUTICASONE PROPIONATE\SALMETEROL XINAFOATE
     Dosage: STRENGTH:125
     Route: 065
  3. SPIRIVA [Concomitant]
     Active Substance: TIOTROPIUM BROMIDE MONOHYDRATE
     Route: 065
  4. ASAPHEN [Concomitant]
     Active Substance: ASPIRIN
     Route: 065
  5. ALTACE [Concomitant]
     Active Substance: RAMIPRIL
     Route: 065

REACTIONS (1)
  - Renal failure [Not Recovered/Not Resolved]
